FAERS Safety Report 17817139 (Version 2)
Quarter: 2020Q2

REPORT INFORMATION
  Report Type: Spontaneous
  Country: NZ (occurrence: NZ)
  Receive Date: 20200522
  Receipt Date: 20200526
  Transmission Date: 20200714
  Serious: Yes (Hospitalization, Other)
  Sender: FDA-Public Use
  Company Number: NZ-PFIZER INC-2020201889

PATIENT
  Age: 47 Year
  Sex: Male

DRUGS (4)
  1. RAMIPRIL. [Suspect]
     Active Substance: RAMIPRIL
     Dosage: UNK
  2. BISOPROLOL [Suspect]
     Active Substance: BISOPROLOL
     Dosage: UNK
  3. SPIRONOLACTONE. [Suspect]
     Active Substance: SPIRONOLACTONE
     Dosage: UNK
  4. FISH OIL [Suspect]
     Active Substance: FISH OIL
     Dosage: UNK

REACTIONS (5)
  - Cardiac failure [Not Recovered/Not Resolved]
  - Sleep apnoea syndrome [Unknown]
  - Dyspnoea [Unknown]
  - Orthopnoea [Unknown]
  - Dyspnoea paroxysmal nocturnal [Unknown]
